FAERS Safety Report 12934657 (Version 1)
Quarter: 2016Q4

REPORT INFORMATION
  Report Type: Spontaneous
  Country: IN (occurrence: IN)
  Receive Date: 20161111
  Receipt Date: 20161111
  Transmission Date: 20170207
  Serious: Yes (Hospitalization)
  Sender: FDA-Public Use
  Company Number: PHHY2016IN152944

PATIENT
  Age: 63 Year
  Sex: Male

DRUGS (1)
  1. CARBAMAZEPINE. [Suspect]
     Active Substance: CARBAMAZEPINE
     Indication: SEIZURE
     Dosage: 600 MG, QD IN DIVIDED DOSES
     Route: 065

REACTIONS (8)
  - Lip ulceration [Recovering/Resolving]
  - Pyrexia [Recovering/Resolving]
  - Drug cross-reactivity [Unknown]
  - Lip swelling [Recovering/Resolving]
  - Rash [Recovering/Resolving]
  - Rash maculo-papular [Recovering/Resolving]
  - Mouth ulceration [Recovering/Resolving]
  - Face oedema [Recovering/Resolving]
